FAERS Safety Report 21693885 (Version 1)
Quarter: 2022Q4

REPORT INFORMATION
  Report Type: Other
  Country: KZ (occurrence: KZ)
  Receive Date: 20221207
  Receipt Date: 20221207
  Transmission Date: 20230113
  Serious: Yes (Hospitalization)
  Sender: FDA-Public Use
  Company Number: KZ-MACLEODS PHARMACEUTICALS LTD. KAZAKHSTAN-MAC2022038047

PATIENT

DRUGS (5)
  1. PYRAZINAMIDE [Suspect]
     Active Substance: PYRAZINAMIDE
     Indication: Respiratory disorder
     Dosage: UNK (STOP DATE: 03 SEP 2022)
     Route: 065
  2. PYRAZINAMIDE [Suspect]
     Active Substance: PYRAZINAMIDE
     Indication: Mediastinal disorder
  3. RIFAMPIN [Concomitant]
     Active Substance: RIFAMPIN
     Indication: Product used for unknown indication
     Dosage: UNK
     Route: 065
  4. ETHAMBUTOL HYDROCHLORIDE [Concomitant]
     Active Substance: ETHAMBUTOL HYDROCHLORIDE
     Indication: Product used for unknown indication
     Dosage: UNK
     Route: 065
  5. ISONIAZID [Concomitant]
     Active Substance: ISONIAZID
     Indication: Product used for unknown indication
     Dosage: UNK
     Route: 065

REACTIONS (3)
  - Hepatitis toxic [Unknown]
  - Blood disorder [Not Recovered/Not Resolved]
  - Lymphatic disorder [Not Recovered/Not Resolved]
